FAERS Safety Report 12483543 (Version 3)
Quarter: 2016Q3

REPORT INFORMATION
  Report Type: Spontaneous
  Country: US (occurrence: US)
  Receive Date: 20160621
  Receipt Date: 20160816
  Transmission Date: 20161109
  Serious: No
  Sender: FDA-Public Use
  Company Number: US-HORIZON-ACT-0153-2016

PATIENT
  Age: 22 Year
  Sex: Female

DRUGS (1)
  1. ACTIMMUNE [Suspect]
     Active Substance: INTERFERON GAMMA-1B
     Indication: OSTEOPETROSIS
     Dosage: 45 ?G TIW
     Dates: start: 1996

REACTIONS (1)
  - Myofascial pain syndrome [Unknown]

NARRATIVE: CASE EVENT DATE: 201601
